FAERS Safety Report 8024575-9 (Version None)
Quarter: 2011Q4

REPORT INFORMATION
  Report Type: 
  Country: None (occurrence: None)
  Receive Date: 20111130
  Receipt Date: 20110512
  Transmission Date: 20120403
  Serious: Yes (Hospitalization)
  Sender: FDA-Public Use
  Company Number: 325136

PATIENT
  Age: 57 Year
  Sex: Female
  Weight: 59.9 kg

DRUGS (8)
  1. NOVOLOG [Suspect]
     Indication: TYPE 2 DIABETES MELLITUS
     Dosage: SUBCUTAN.-PUMP ; SUBCUTAN.-PUMP ; SUBCUTAN.-PUMP
     Route: 058
     Dates: start: 20110317
  2. NOVOLOG [Suspect]
     Indication: TYPE 2 DIABETES MELLITUS
     Dosage: SUBCUTAN.-PUMP ; SUBCUTAN.-PUMP ; SUBCUTAN.-PUMP
     Route: 058
     Dates: start: 20110316, end: 20110316
  3. NOVOLOG [Suspect]
     Indication: TYPE 2 DIABETES MELLITUS
     Dosage: SUBCUTAN.-PUMP ; SUBCUTAN.-PUMP ; SUBCUTAN.-PUMP
     Route: 058
     Dates: start: 20090901, end: 20110311
  4. METFORMIN HCL [Concomitant]
  5. FLONASE [Concomitant]
  6. ZOCOR [Concomitant]
  7. LOTESNIN HCT (BENAZEPRIL HYDROCHLORIDE, HYDROCHLOROTHIAZIDE) [Concomitant]
  8. ZANTAC [Concomitant]

REACTIONS (2)
  - DRUG INEFFECTIVE [None]
  - BLOOD GLUCOSE INCREASED [None]
